FAERS Safety Report 9794648 (Version 1)
Quarter: 2014Q1

REPORT INFORMATION
  Report Type: Spontaneous
  Country: FR (occurrence: FR)
  Receive Date: 20140102
  Receipt Date: 20140102
  Transmission Date: 20141002
  Serious: Yes (Death)
  Sender: FDA-Public Use
  Company Number: FR-GLAXOSMITHKLINE-B0956937A

PATIENT
  Age: 54 Year
  Sex: Male

DRUGS (1)
  1. SORIATANE [Suspect]
     Indication: PSORIASIS
     Route: 048
     Dates: start: 20130507, end: 20130701

REACTIONS (1)
  - Malignant mediastinal neoplasm [Fatal]
